FAERS Safety Report 4830568-2 (Version None)
Quarter: 2005Q4

REPORT INFORMATION
  Report Type: 
  Country: None (occurrence: None)
  Receive Date: 20051115
  Receipt Date: 20051102
  Transmission Date: 20060501
  Serious: Yes (Death)
  Sender: FDA-Public Use
  Company Number: 2004240184IT

PATIENT
  Age: 3 Year
  Sex: Female

DRUGS (1)
  1. SOMATROPIN (SOMATROPIN) [Suspect]
     Indication: PRADER-WILLI SYNDROME
     Dosage: (0.33 MG/KG, WEEKLY:  0.33 MG/KG WEEKLY.)
     Dates: start: 19980701

REACTIONS (2)
  - SNORING [None]
  - SUDDEN DEATH [None]
